FAERS Safety Report 5138715-2 (Version None)
Quarter: 2006Q4

REPORT INFORMATION
  Report Type: 
  Country: None (occurrence: None)
  Receive Date: 20061030
  Receipt Date: 20061019
  Transmission Date: 20070319
  Serious: Yes (Other)
  Sender: FDA-Public Use
  Company Number: AU-JNJFOC-20061004945

PATIENT
  Age: 21 Year
  Sex: Male

DRUGS (2)
  1. REMICADE [Suspect]
     Route: 042
  2. REMICADE [Suspect]
     Indication: COLITIS ULCERATIVE
     Route: 042

REACTIONS (10)
  - ANAEMIA [None]
  - CEREBRAL DISORDER [None]
  - CEREBRAL INFARCTION [None]
  - COLITIS ULCERATIVE [None]
  - CONDITION AGGRAVATED [None]
  - EYE DISORDER [None]
  - HEADACHE [None]
  - MALAISE [None]
  - PLATELET COUNT INCREASED [None]
  - RED BLOOD CELL SEDIMENTATION RATE INCREASED [None]
